FAERS Safety Report 6454074-7 (Version None)
Quarter: 2009Q4

REPORT INFORMATION
  Report Type: 
  Country: None (occurrence: None)
  Receive Date: 20091124
  Receipt Date: 20091119
  Transmission Date: 20100525
  Serious: Yes (Hospitalization)
  Sender: FDA-Public Use
  Company Number: B0606107A

PATIENT
  Age: 10 Month
  Sex: Male

DRUGS (1)
  1. FLIXOTIDE [Suspect]
     Indication: DRUG USE FOR UNKNOWN INDICATION
     Dosage: 1UNIT PER DAY
     Route: 055
     Dates: start: 20090928

REACTIONS (2)
  - PRURIGO [None]
  - URTICARIA [None]
